FAERS Safety Report 11355102 (Version 1)
Quarter: 2015Q3

REPORT INFORMATION
  Report Type: Spontaneous
  Country: US (occurrence: US)
  Receive Date: 20150807
  Receipt Date: 20150807
  Transmission Date: 20151125
  Serious: Yes (Congenital Anomaly, Other)
  Sender: FDA-Public Use
  Company Number: US-PFIZER INC-2015256529

PATIENT
  Sex: Female
  Weight: 4 kg

DRUGS (10)
  1. ZOLOFT [Suspect]
     Active Substance: SERTRALINE HYDROCHLORIDE
     Indication: DEPRESSION
     Dosage: UNK
     Route: 064
     Dates: start: 19990923
  2. EXCEDRIN [Concomitant]
     Active Substance: ACETAMINOPHEN\ASPIRIN\CAFFEINE
     Dosage: UNK
     Route: 064
     Dates: start: 19991230
  3. FLAGYL [Concomitant]
     Active Substance: METRONIDAZOLE\METRONIDAZOLE HYDROCHLORIDE
     Dosage: UNK, 2X/DAY
     Route: 064
     Dates: start: 20000104
  4. ZOLOFT [Suspect]
     Active Substance: SERTRALINE HYDROCHLORIDE
     Dosage: 50 MG, DAILY (EVERY DAY)
     Route: 064
     Dates: start: 20000104
  5. AMOXICILLIN. [Concomitant]
     Active Substance: AMOXICILLIN
     Indication: NASOPHARYNGITIS
     Dosage: 500 MG, 3X/DAY
     Route: 064
     Dates: start: 20000216
  6. PRENATAL VITAMINS [Concomitant]
     Active Substance: VITAMINS
     Dosage: UNK
     Route: 064
     Dates: start: 19991230
  7. ZOLOFT [Suspect]
     Active Substance: SERTRALINE HYDROCHLORIDE
     Dosage: 50 MG, DAILY (EVERY DAY)
     Route: 064
     Dates: start: 19990926
  8. ZOLOFT [Suspect]
     Active Substance: SERTRALINE HYDROCHLORIDE
     Dosage: 50 MG, DAILY (EVERY DAY)
     Route: 064
     Dates: start: 19991230
  9. ZOLOFT [Suspect]
     Active Substance: SERTRALINE HYDROCHLORIDE
     Dosage: 100 MG, DAILY
     Route: 064
     Dates: start: 20000614
  10. TYLENOL [Concomitant]
     Active Substance: ACETAMINOPHEN
     Dosage: UNK
     Route: 064
     Dates: start: 19991230

REACTIONS (6)
  - Maternal exposure during pregnancy [Unknown]
  - Congenital aortic stenosis [Unknown]
  - Bicuspid aortic valve [Unknown]
  - Ventricular septal defect [Unknown]
  - Tricuspid valve incompetence [Unknown]
  - Aortic dilatation [Unknown]

NARRATIVE: CASE EVENT DATE: 20000802
